FAERS Safety Report 8111356-0 (Version None)
Quarter: 2012Q1

REPORT INFORMATION
  Report Type: 
  Country: None (occurrence: None)
  Receive Date: 20120203
  Receipt Date: 20110927
  Transmission Date: 20120608
  Serious: No
  Sender: FDA-Public Use
  Company Number: US-GLAXOSMITHKLINE-A0946202A

PATIENT
  Age: 71 Year
  Sex: Female

DRUGS (3)
  1. ZALEPLON [Concomitant]
  2. ADDERALL 5 [Concomitant]
  3. LAMICTAL [Suspect]
     Indication: BIPOLAR DISORDER
     Dosage: 100MG PER DAY
     Route: 048

REACTIONS (1)
  - RASH [None]
